FAERS Safety Report 9797830 (Version 2)
Quarter: 2014Q1

REPORT INFORMATION
  Report Type: Spontaneous
  Country: US (occurrence: US)
  Receive Date: 20140106
  Receipt Date: 20140106
  Transmission Date: 20141002
  Serious: Yes (Disabling)
  Sender: FDA-Public Use
  Company Number: US-GE HEALTHCARE MEDICAL DIAGNOSTICS-OSCN-PR-1102S-0085

PATIENT
  Sex: Female

DRUGS (6)
  1. OMNISCAN [Suspect]
     Indication: SUBCLAVIAN ARTERY STENOSIS
     Route: 042
     Dates: start: 20040423, end: 20040423
  2. OMNISCAN [Suspect]
     Indication: BLINDNESS
     Route: 042
     Dates: start: 20070101, end: 20070101
  3. GADOLINIUM (UNSPECIFIED) [Suspect]
     Indication: PRODUCT USED FOR UNKNOWN INDICATION
  4. MULTIHANCE [Suspect]
     Indication: ABDOMINAL PAIN
     Dates: start: 20080422, end: 20080422
  5. MULTIHANCE [Suspect]
     Indication: PRODUCT USED FOR UNKNOWN INDICATION
     Dates: start: 20090327, end: 20090327
  6. MULTIHANCE [Suspect]
     Indication: RENAL TRANSPLANT
     Dates: start: 20090519, end: 20090519

REACTIONS (1)
  - Nephrogenic systemic fibrosis [Not Recovered/Not Resolved]
